FAERS Safety Report 20369710 (Version 1)
Quarter: 2022Q1

REPORT INFORMATION
  Report Type: Spontaneous
  Country: US (occurrence: US)
  Receive Date: 20220124
  Receipt Date: 20220124
  Transmission Date: 20220423
  Serious: No
  Sender: FDA-Public Use
  Company Number: US-PFIZER INC-202200029803

PATIENT
  Age: 30 Year
  Sex: Female

DRUGS (1)
  1. IBRANCE [Suspect]
     Active Substance: PALBOCICLIB
     Dosage: 125 MG, CYCLIC (DAILY DAYS 1-21 OF A 28 DAY)
     Route: 048
     Dates: start: 20210726

REACTIONS (1)
  - Neoplasm progression [Unknown]
